FAERS Safety Report 17458856 (Version 1)
Quarter: 2020Q1

REPORT INFORMATION
  Report Type: Spontaneous
  Country: US (occurrence: US)
  Receive Date: 20200225
  Receipt Date: 20200225
  Transmission Date: 20200409
  Serious: No
  Sender: FDA-Public Use
  Company Number: US-IGSA-SR10008715

PATIENT
  Age: 52 Year
  Sex: Female
  Weight: 54.4 kg

DRUGS (14)
  1. QVAR [Concomitant]
     Active Substance: BECLOMETHASONE DIPROPIONATE
  2. QUETIAPINE. [Concomitant]
     Active Substance: QUETIAPINE
  3. PROLASTIN-C [Suspect]
     Active Substance: .ALPHA.1-PROTEINASE INHIBITOR HUMAN
     Indication: ALPHA-1 ANTI-TRYPSIN DEFICIENCY
     Dosage: 3264 MG, Q.WK.
     Route: 042
     Dates: start: 20141112, end: 20190623
  4. XARELTO [Concomitant]
     Active Substance: RIVAROXABAN
  5. NORFLEX [Concomitant]
     Active Substance: ORPHENADRINE CITRATE
  6. PROLASTIN-C LIQUID [Suspect]
     Active Substance: .ALPHA.1-PROTEINASE INHIBITOR HUMAN
     Dosage: 3264 MG, Q.WK.
     Route: 042
     Dates: start: 20190721
  7. OXYCODONE [Concomitant]
     Active Substance: OXYCODONE
  8. PROLASTIN-C LIQUID [Suspect]
     Active Substance: .ALPHA.1-PROTEINASE INHIBITOR HUMAN
     Indication: ALPHA-1 ANTI-TRYPSIN DEFICIENCY
     Dosage: 3264 MG, Q.WK.
     Route: 042
     Dates: start: 20190624, end: 20190624
  9. ALBUTEROL SULFATE. [Concomitant]
     Active Substance: ALBUTEROL SULFATE
  10. VITAMIN B12 [Concomitant]
     Active Substance: CYANOCOBALAMIN
  11. XANAX [Concomitant]
     Active Substance: ALPRAZOLAM
  12. BENADRYL [Concomitant]
     Active Substance: DIPHENHYDRAMINE HYDROCHLORIDE
     Indication: PREMEDICATION
     Dosage: 25 MG, UNK
     Dates: start: 20190701
  13. PROLASTIN-C LIQUID [Suspect]
     Active Substance: .ALPHA.1-PROTEINASE INHIBITOR HUMAN
     Dosage: 3264 MG, Q.WK.
     Route: 042
     Dates: start: 20190701, end: 20190701
  14. FOLIC ACID. [Concomitant]
     Active Substance: FOLIC ACID

REACTIONS (2)
  - Headache [Recovered/Resolved]
  - Incorrect drug administration rate [Recovered/Resolved]

NARRATIVE: CASE EVENT DATE: 20190624
